FAERS Safety Report 9779062 (Version 1)
Quarter: 2013Q4

REPORT INFORMATION
  Report Type: Spontaneous
  Country: CH (occurrence: CH)
  Receive Date: 20131223
  Receipt Date: 20131223
  Transmission Date: 20140711
  Serious: Yes (Death, Hospitalization)
  Sender: FDA-Public Use
  Company Number: CH-PFIZER INC-2013363336

PATIENT
  Age: 71 Year
  Sex: Male
  Weight: 40 kg

DRUGS (8)
  1. VENLAFAXINE HCL [Suspect]
     Indication: DEPRESSION
     Dosage: 150 MG, 1X/DAY
     Route: 048
     Dates: start: 2004, end: 20130916
  2. GABAPENTIN [Concomitant]
     Indication: PAIN
     Dosage: 600 MG, 3X/DAY
     Route: 048
     Dates: start: 2004
  3. GABAPENTIN [Concomitant]
     Dosage: 300 MG, 3X/DAY
     Route: 048
     Dates: start: 20130909
  4. MST CONTINUS ^MUNDIPHARMA^ [Concomitant]
     Indication: BACK PAIN
     Dosage: 40 MG, 3X/DAY
     Route: 048
     Dates: start: 2013
  5. SIRDALUD [Concomitant]
     Indication: PAIN
     Dosage: 2 MG, 3X/DAY
     Route: 048
     Dates: start: 2004
  6. IMOVANE [Concomitant]
     Indication: SLEEP DISORDER
     Dosage: 15 MG, DAILY
     Route: 048
     Dates: start: 2004
  7. CARDIOASPIRINE [Concomitant]
     Indication: PROPHYLAXIS
     Dosage: 100 MG, DAILY
     Route: 048
     Dates: start: 1996
  8. NEXIUM [Concomitant]
     Indication: DYSPEPSIA
     Dosage: 20 MG, DAILY
     Route: 048
     Dates: start: 2013

REACTIONS (6)
  - Sudden cardiac death [Fatal]
  - Hypotension [Not Recovered/Not Resolved]
  - Overdose [Recovering/Resolving]
  - Electrocardiogram abnormal [Recovered/Resolved]
  - Renal failure acute [Recovered/Resolved]
  - Depressed mood [Unknown]
